FAERS Safety Report 5141766-5 (Version None)
Quarter: 2006Q4

REPORT INFORMATION
  Report Type: 
  Country: None (occurrence: None)
  Receive Date: 20061027
  Receipt Date: 20061011
  Transmission Date: 20070319
  Serious: Yes (Other)
  Sender: FDA-Public Use
  Company Number: DE200610003237

PATIENT
  Age: 39 Year
  Sex: Female

DRUGS (2)
  1. ZYPREXA [Suspect]
     Indication: SCHIZOPHRENIA
     Dosage: 30 MG
  2. LORAZEPAM [Concomitant]

REACTIONS (5)
  - BLOOD PRESSURE INCREASED [None]
  - DIABETES INSIPIDUS [None]
  - DIABETES MELLITUS [None]
  - HEART RATE INCREASED [None]
  - OBESITY [None]
